FAERS Safety Report 4941558-3 (Version None)
Quarter: 2006Q1

REPORT INFORMATION
  Report Type: 
  Country: None (occurrence: None)
  Receive Date: 20060310
  Receipt Date: 20060310
  Transmission Date: 20060701
  Serious: Yes (Hospitalization)
  Sender: FDA-Public Use
  Company Number: None

PATIENT
  Sex: Female
  Weight: 78.9259 kg

DRUGS (1)
  1. FERRLECIT [Suspect]
     Indication: ANAEMIA
     Dosage: 500 MG  X 1    IV
     Route: 042
     Dates: start: 20060309

REACTIONS (7)
  - ANXIETY [None]
  - BLOOD PRESSURE DECREASED [None]
  - BLOOD PRESSURE INCREASED [None]
  - CHEST PAIN [None]
  - DIZZINESS POSTURAL [None]
  - INFUSION RELATED REACTION [None]
  - OEDEMA PERIPHERAL [None]
